FAERS Safety Report 4865588-5 (Version None)
Quarter: 2006Q1

REPORT INFORMATION
  Report Type: 
  Country: None (occurrence: None)
  Receive Date: 20051220
  Receipt Date: 20051205
  Transmission Date: 20060701
  Serious: Yes (Other)
  Sender: FDA-Public Use
  Company Number: 2005SS000146

PATIENT
  Age: 34 Year
  Sex: Female
  Weight: 67.1324 kg

DRUGS (3)
  1. MYOBLOC [Suspect]
     Indication: HYPERHIDROSIS
     Dosage: SEE IMAGE
     Route: 030
     Dates: start: 20050501, end: 20050501
  2. MYOBLOC [Suspect]
     Indication: HYPERHIDROSIS
     Dosage: SEE IMAGE
     Route: 030
     Dates: start: 20050715, end: 20050715
  3. ZELNORM /USA/ [Concomitant]

REACTIONS (10)
  - ABDOMINAL PAIN [None]
  - ACCIDENTAL OVERDOSE [None]
  - CONSTIPATION [None]
  - DRUG EXPOSURE DURING PREGNANCY [None]
  - DRY MOUTH [None]
  - DYSPHAGIA [None]
  - OFF LABEL USE [None]
  - PAIN [None]
  - PREGNANCY [None]
  - VISION BLURRED [None]
